FAERS Safety Report 9408105 (Version 1)
Quarter: 2013Q3

REPORT INFORMATION
  Report Type: Spontaneous
  Country: GB (occurrence: GB)
  Receive Date: 20130718
  Receipt Date: 20130718
  Transmission Date: 20140515
  Serious: Yes (Other)
  Sender: FDA-Public Use
  Company Number: GB-ROCHE-1249503

PATIENT
  Sex: 0

DRUGS (1)
  1. RITUXIMAB [Suspect]
     Indication: UNEVALUABLE EVENT
     Route: 065

REACTIONS (1)
  - Progressive multifocal leukoencephalopathy [Unknown]
